FAERS Safety Report 21386843 (Version 1)
Quarter: 2022Q3

REPORT INFORMATION
  Report Type: Spontaneous
  Country: FR (occurrence: None)
  Receive Date: 20220928
  Receipt Date: 20220928
  Transmission Date: 20221027
  Serious: Yes (Other)
  Sender: FDA-Public Use
  Company Number: None

PATIENT
  Age: 48 Year
  Sex: Male
  Weight: 60 kg

DRUGS (4)
  1. LEVOTHYROXINE SODIUM [Suspect]
     Active Substance: LEVOTHYROXINE SODIUM
     Indication: Wrong patient received product
     Dosage: SCORED TABLET
     Route: 048
     Dates: start: 20220901
  2. LOXAPINE [Suspect]
     Active Substance: LOXAPINE
     Indication: Wrong patient received product
     Route: 048
     Dates: start: 20220901
  3. TRIHEXYPHENIDYL HYDROCHLORIDE [Suspect]
     Active Substance: TRIHEXYPHENIDYL HYDROCHLORIDE
     Indication: Wrong patient received product
     Dosage: EXTENDED-RELEASE CAPSULE
     Route: 048
     Dates: start: 20220901
  4. CHOLECALCIFEROL [Suspect]
     Active Substance: CHOLECALCIFEROL
     Indication: Wrong patient received product
     Route: 048
     Dates: start: 20220901

REACTIONS (2)
  - Asthenia [Recovered/Resolved]
  - Wrong patient [Recovered/Resolved]

NARRATIVE: CASE EVENT DATE: 20220901
